FAERS Safety Report 5017500-6 (Version None)
Quarter: 2006Q2

REPORT INFORMATION
  Report Type: 
  Country: None (occurrence: None)
  Receive Date: 20060601
  Receipt Date: 20060601
  Transmission Date: 20061013
  Serious: Yes (Life-Threatening)
  Sender: FDA-Public Use
  Company Number: None

PATIENT
  Sex: Male
  Weight: 59.8748 kg

DRUGS (3)
  1. PAXIL CR [Suspect]
     Indication: NERVOUSNESS
     Dosage: 10 MG   1 A DAY
     Dates: start: 20060504
  2. PAXIL CR [Suspect]
     Indication: PANIC ATTACK
     Dosage: 10 MG   1 A DAY
     Dates: start: 20060504
  3. . [Concomitant]

REACTIONS (27)
  - ANGER [None]
  - ARRHYTHMIA [None]
  - ARTERIAL DISORDER [None]
  - ASTHENIA [None]
  - CARDIAC DISORDER [None]
  - CHEST PAIN [None]
  - DEPRESSION [None]
  - DIZZINESS [None]
  - DRUG WITHDRAWAL SYNDROME [None]
  - DRY MOUTH [None]
  - FATIGUE [None]
  - FEAR [None]
  - FEELING ABNORMAL [None]
  - HALLUCINATION [None]
  - HANGOVER [None]
  - HYPERHIDROSIS [None]
  - INSOMNIA [None]
  - MOOD SWINGS [None]
  - NAUSEA [None]
  - PHOTOPHOBIA [None]
  - SHOULDER PAIN [None]
  - SUICIDAL IDEATION [None]
  - THINKING ABNORMAL [None]
  - TREMOR [None]
  - VEIN PAIN [None]
  - VISUAL DISTURBANCE [None]
  - VOMITING [None]
